FAERS Safety Report 6979687-5 (Version None)
Quarter: 2010Q3

REPORT INFORMATION
  Report Type: 
  Country: None (occurrence: None)
  Receive Date: 20100908
  Receipt Date: 20100827
  Transmission Date: 20110219
  Serious: Yes (Hospitalization, Other)
  Sender: FDA-Public Use
  Company Number: 684750

PATIENT
  Sex: Male

DRUGS (1)
  1. VANCOMYCIN HYDROCHLORIDE [Suspect]
     Dosage: 500 MG MILLIGRAM(S), INTRAVENOUS
     Route: 042

REACTIONS (1)
  - PERIPHERAL ISCHAEMIA [None]
